FAERS Safety Report 4436287-9 (Version None)
Quarter: 2004Q3

REPORT INFORMATION
  Report Type: 
  Country: None (occurrence: None)
  Receive Date: 20040830
  Receipt Date: 20040702
  Transmission Date: 20050211
  Serious: No
  Sender: FDA-Public Use
  Company Number: US-BRISTOL-MYERS SQUIBB COMPANY-12632030

PATIENT
  Age: 68 Year
  Sex: Female

DRUGS (2)
  1. ERBITUX [Suspect]
     Indication: COLON CANCER METASTATIC
     Dosage: INTERRUPTED.
     Dates: start: 20040417, end: 20040417
  2. TYLENOL [Concomitant]
     Route: 048
     Dates: start: 20040417, end: 20040417

REACTIONS (1)
  - DERMATITIS ACNEIFORM [None]
